FAERS Safety Report 6987224-4 (Version None)
Quarter: 2010Q3

REPORT INFORMATION
  Report Type: 
  Country: None (occurrence: None)
  Receive Date: 20100827
  Receipt Date: 20100128
  Transmission Date: 20110219
  Serious: Yes (Other)
  Sender: FDA-Public Use
  Company Number: AMAG201000056

PATIENT
  Age: 71 Year
  Sex: Female
  Weight: 84.8 kg

DRUGS (13)
  1. FERAHEME [Suspect]
     Indication: IRON DEFICIENCY ANAEMIA
     Dosage: 510 MG, SINGLE, INTRAVENOUS ; 510 MG, SINGLE, INTRAVENOUS ; 510 MG, SINGLE, INTRAVENOUS
     Route: 042
     Dates: start: 20091222, end: 20091222
  2. FERAHEME [Suspect]
     Indication: IRON DEFICIENCY ANAEMIA
     Dosage: 510 MG, SINGLE, INTRAVENOUS ; 510 MG, SINGLE, INTRAVENOUS ; 510 MG, SINGLE, INTRAVENOUS
     Route: 042
     Dates: start: 20091229, end: 20091229
  3. FERAHEME [Suspect]
     Indication: IRON DEFICIENCY ANAEMIA
     Dosage: 510 MG, SINGLE, INTRAVENOUS ; 510 MG, SINGLE, INTRAVENOUS ; 510 MG, SINGLE, INTRAVENOUS
     Route: 042
     Dates: start: 20100127, end: 20100127
  4. CALCIUM (CALCIUM GLUBIONATE) [Concomitant]
  5. FAMOTIDINE [Concomitant]
  6. FUROSEMIDE (FUROSEMIDE SODIUM) [Concomitant]
  7. LANTUS [Concomitant]
  8. LIPITOR [Concomitant]
  9. LISINOPRIL (LISINOPRIL DIHYDRATE) [Concomitant]
  10. MULTIVITAMIN [Concomitant]
  11. NOVOLOG [Concomitant]
  12. SODIUM BICARBONATE IN PLASTIC CONTAINER [Concomitant]
  13. VITAMIN D [Concomitant]

REACTIONS (5)
  - BLOOD GLUCOSE INCREASED [None]
  - DIZZINESS [None]
  - HYPERHIDROSIS [None]
  - HYPOTENSION [None]
  - PALLOR [None]
